FAERS Safety Report 12719494 (Version 1)
Quarter: 2016Q3

REPORT INFORMATION
  Report Type: Spontaneous
  Country: JP (occurrence: JP)
  Receive Date: 20160907
  Receipt Date: 20160907
  Transmission Date: 20161109
  Serious: Yes (Life-Threatening, Hospitalization, Other)
  Sender: FDA-Public Use
  Company Number: JP-ROCHE-1826090

PATIENT
  Age: 72 Year
  Sex: Male
  Weight: 51 kg

DRUGS (25)
  1. LECTISOL [Suspect]
     Active Substance: DAPSONE
     Indication: PEMPHIGOID
     Route: 048
     Dates: start: 20121219, end: 20130201
  2. PREDNISOLONE. [Suspect]
     Active Substance: PREDNISOLONE
     Route: 048
     Dates: start: 20130319, end: 20130409
  3. PREDNISOLONE. [Suspect]
     Active Substance: PREDNISOLONE
     Route: 048
     Dates: start: 20130516, end: 20130522
  4. MINOMYCIN [Suspect]
     Active Substance: MINOCYCLINE HYDROCHLORIDE
     Indication: PRODUCT USED FOR UNKNOWN INDICATION
     Route: 048
     Dates: start: 20120321, end: 20120618
  5. MINOMYCIN [Suspect]
     Active Substance: MINOCYCLINE HYDROCHLORIDE
     Route: 048
     Dates: start: 20120807, end: 20121128
  6. PREDNISOLONE. [Suspect]
     Active Substance: PREDNISOLONE
     Route: 048
     Dates: start: 20130410, end: 20130416
  7. PREDNISOLONE. [Suspect]
     Active Substance: PREDNISOLONE
     Route: 048
     Dates: start: 20130614
  8. FAMOTIDINE D [Concomitant]
     Active Substance: FAMOTIDINE
     Indication: PROPHYLAXIS AGAINST GASTROINTESTINAL ULCER
     Route: 048
     Dates: start: 20120918
  9. PL [Concomitant]
     Active Substance: ACETAMINOPHEN\CAFFEINE\PROMETHAZINE\SALICYLAMIDE
     Route: 048
     Dates: start: 20130130, end: 20130201
  10. VENOGLOBULIN IH [Concomitant]
     Active Substance: HUMAN IMMUNOGLOBULIN G
     Route: 065
     Dates: start: 20130328, end: 20130330
  11. DENOSINE (JAPAN) [Suspect]
     Active Substance: GANCICLOVIR
     Route: 041
     Dates: start: 20130612, end: 20130628
  12. DENOSINE (JAPAN) [Suspect]
     Active Substance: GANCICLOVIR
     Route: 041
     Dates: start: 20131003, end: 20131007
  13. PREDNISOLONE. [Suspect]
     Active Substance: PREDNISOLONE
     Route: 048
     Dates: start: 20130417, end: 20130424
  14. PREDNISOLONE. [Suspect]
     Active Substance: PREDNISOLONE
     Route: 048
     Dates: start: 20130529, end: 20130613
  15. PREDNISOLONE. [Suspect]
     Active Substance: PREDNISOLONE
     Route: 048
  16. CALONAL [Concomitant]
     Active Substance: ACETAMINOPHEN
     Dosage: 400-1200 MG/DAY, DIVIDED INTO THREE TIMES AFTER MEALS
     Route: 048
     Dates: start: 20130201
  17. MINOMYCIN [Suspect]
     Active Substance: MINOCYCLINE HYDROCHLORIDE
     Route: 048
     Dates: start: 20130201, end: 20130319
  18. PREDNISOLONE. [Suspect]
     Active Substance: PREDNISOLONE
     Route: 048
     Dates: start: 20130425, end: 20130508
  19. DENOSINE (JAPAN) [Suspect]
     Active Substance: GANCICLOVIR
     Indication: PRODUCT USED FOR UNKNOWN INDICATION
     Route: 041
     Dates: start: 20130326, end: 20130408
  20. DENOSINE (JAPAN) [Suspect]
     Active Substance: GANCICLOVIR
     Route: 041
     Dates: start: 20130724, end: 20130812
  21. ACHROMYCIN V [Concomitant]
     Active Substance: TETRACYCLINE HYDROCHLORIDE
     Route: 048
     Dates: start: 20121211, end: 20130201
  22. PREDNISOLONE. [Suspect]
     Active Substance: PREDNISOLONE
     Indication: INFLAMMATION
     Route: 048
     Dates: start: 20120918, end: 20130318
  23. PREDNISOLONE. [Suspect]
     Active Substance: PREDNISOLONE
     Route: 048
     Dates: start: 20130509, end: 20130515
  24. PREDNISOLONE. [Suspect]
     Active Substance: PREDNISOLONE
     Route: 048
     Dates: start: 20130523, end: 20130528
  25. NICOTINAMIDE [Concomitant]
     Active Substance: NIACINAMIDE
     Route: 048
     Dates: start: 20120817, end: 20130318

REACTIONS (8)
  - Cytomegalovirus infection [Recovering/Resolving]
  - Drug hypersensitivity [Recovering/Resolving]
  - Pancytopenia [Recovering/Resolving]
  - Quality of life decreased [Recovering/Resolving]
  - Rash [Recovering/Resolving]
  - Pyrexia [Recovering/Resolving]
  - Drug reaction with eosinophilia and systemic symptoms [Recovering/Resolving]
  - Pneumocystis jirovecii pneumonia [Recovering/Resolving]

NARRATIVE: CASE EVENT DATE: 20130130
